FAERS Safety Report 5057177-7 (Version None)
Quarter: 2006Q3

REPORT INFORMATION
  Report Type: 
  Country: None (occurrence: None)
  Receive Date: 20060721
  Receipt Date: 20050527
  Transmission Date: 20061208
  Serious: No
  Sender: FDA-Public Use
  Company Number: US-GLAXOSMITHKLINE-A0560405A

PATIENT
  Age: 55 Year
  Sex: Male

DRUGS (6)
  1. AVANDIA [Suspect]
     Dosage: 4MG TWICE PER DAY
     Route: 048
     Dates: start: 20050101
  2. AMARYL [Concomitant]
  3. LORAZEPAM [Concomitant]
  4. GABITRIL [Concomitant]
  5. AMBIEN [Concomitant]
  6. FUROSEMIDE [Concomitant]
     Dates: start: 20050524

REACTIONS (1)
  - OEDEMA PERIPHERAL [None]
